FAERS Safety Report 5418495-3 (Version None)
Quarter: 2007Q3

REPORT INFORMATION
  Report Type: 
  Country: None (occurrence: None)
  Receive Date: 20070817
  Receipt Date: 20070731
  Transmission Date: 20080115
  Serious: No
  Sender: FDA-Public Use
  Company Number: US-BOEHRINGER INGELHEIM PHARMACEUTICALS, INC.-2007-BP-18466BP

PATIENT
  Sex: Female
  Weight: 41 kg

DRUGS (4)
  1. MIRAPEX [Suspect]
     Indication: RESTLESS LEGS SYNDROME
     Route: 048
     Dates: start: 20070501
  2. SYNTHROID [Concomitant]
     Indication: HYPOTHYROIDISM
  3. DETROL LA [Concomitant]
     Indication: URINARY INCONTINENCE
  4. WELCHOL [Concomitant]
     Indication: BLOOD CHOLESTEROL

REACTIONS (2)
  - OEDEMA PERIPHERAL [None]
  - SINUS CONGESTION [None]
